FAERS Safety Report 24322545 (Version 1)
Quarter: 2024Q3

REPORT INFORMATION
  Report Type: Report from Study
  Country: CA (occurrence: CA)
  Receive Date: 20240916
  Receipt Date: 20240916
  Transmission Date: 20241017
  Serious: Yes (Other)
  Sender: GILEAD
  Company Number: CA-GILEAD-2024-0686482

PATIENT
  Sex: Male

DRUGS (1)
  1. AZTREONAM LYSINE [Suspect]
     Active Substance: AZTREONAM LYSINE
     Indication: Cystic fibrosis
     Dosage: 75 MG, TID (1VIAL) BY INHALATION TID CONTINUOUSLY WITHOUT DRUG FREE INTERVAL AS DIRECTED BY MD)
     Route: 055
     Dates: start: 20221216, end: 202408

REACTIONS (3)
  - Breast haemorrhage [Unknown]
  - Infection [Not Recovered/Not Resolved]
  - Off label use [Recovered/Resolved]
